FAERS Safety Report 16647513 (Version 1)
Quarter: 2019Q3

REPORT INFORMATION
  Report Type: Spontaneous
  Country: US (occurrence: US)
  Receive Date: 20190729
  Receipt Date: 20190729
  Transmission Date: 20191004
  Serious: No
  Sender: FDA-Public Use
  Company Number: None

PATIENT
  Age: 68 Year
  Sex: Female
  Weight: 54 kg

DRUGS (18)
  1. KRILL OIL [Concomitant]
     Active Substance: DIETARY SUPPLEMENT\KRILL OIL
  2. VITAMIN D3 [Concomitant]
     Active Substance: CHOLECALCIFEROL
  3. SWANSON SUPER STRENGTH B-COMPLEX [Concomitant]
  4. EPA [Concomitant]
  5. MAGNESIUM [Concomitant]
     Active Substance: MAGNESIUM
  6. BILBERRY EXTRACT [Concomitant]
  7. METFORMIN [Concomitant]
     Active Substance: METFORMIN HYDROCHLORIDE
  8. SUBLINGUAL VITAMIN B COMPLEX [Concomitant]
  9. DHA [Concomitant]
     Active Substance: DIETARY SUPPLEMENT
  10. BLACK CUMIN SEED OIL [Concomitant]
  11. VITAMIN K2 [Concomitant]
     Active Substance: MENAQUINONE 6
  12. DHEA [Concomitant]
     Active Substance: PRASTERONE
  13. COD LIVER OIL [Concomitant]
     Active Substance: COD LIVER OIL
  14. ASAXANTHIN [Concomitant]
  15. LITHIUM OROTATE [Concomitant]
     Active Substance: LITHIUM OROTATE
  16. ALPHA LOPOIC ACID [Concomitant]
  17. EQUATE EYE ALLERGY RELIEF DROPS [Suspect]
     Active Substance: NAPHAZOLINE HYDROCHLORIDE\PHENIRAMINE MALEATE
     Indication: EYE ALLERGY
     Route: 047
  18. COENZYME Q10 [Concomitant]
     Active Substance: UBIDECARENONE

REACTIONS (2)
  - Eye irritation [None]
  - Instillation site pain [None]

NARRATIVE: CASE EVENT DATE: 20190529
